FAERS Safety Report 9891463 (Version 3)
Quarter: 2019Q4

REPORT INFORMATION
  Report Type: Spontaneous
  Country: US (occurrence: US)
  Receive Date: 20140212
  Receipt Date: 20191219
  Transmission Date: 20200122
  Serious: Yes (Hospitalization, Other)
  Sender: FDA-Public Use
  Company Number: US-UCBSA-111832

PATIENT
  Sex: Male
  Weight: 79.54 kg

DRUGS (13)
  1. DIFLUCAN [Concomitant]
     Active Substance: FLUCONAZOLE
     Dosage: 200 MG, ONCE DAILY (QD)
     Route: 048
  2. VITAMIN D [Concomitant]
     Active Substance: VITAMIN D NOS
     Dosage: 5000 UNIT
  3. DIFLUCAN [Concomitant]
     Active Substance: FLUCONAZOLE
  4. FLONASE [Concomitant]
     Active Substance: FLUTICASONE PROPIONATE
     Indication: NASAL CONGESTION
     Dosage: 2 SPRAYS AS NEEDED
     Route: 045
  5. IBUPROFEN. [Concomitant]
     Active Substance: IBUPROFEN
     Dosage: 20 MG
  6. MULTIVITAMINS [Concomitant]
     Active Substance: VITAMINS
  7. SUDAFED [Concomitant]
     Active Substance: PSEUDOEPHEDRINE HYDROCHLORIDE
     Dosage: 30 MILLIGRAM
  8. CIMZIA [Suspect]
     Active Substance: CERTOLIZUMAB PEGOL
     Indication: CROHN^S DISEASE
     Dosage: 400 MG, EV 4 WEEKS
     Route: 058
  9. VITAMIN B COMPLEX-VITAMIN C CAP [Concomitant]
  10. OMEPRAZOLE. [Concomitant]
     Active Substance: OMEPRAZOLE
     Dosage: 10 MG
     Route: 048
  11. MESALAMINE. [Concomitant]
     Active Substance: MESALAMINE
     Indication: CROHN^S DISEASE
     Dosage: 2 G, 2X/DAY (BID)
     Route: 048
     Dates: start: 20140129
  12. CIMZIA [Suspect]
     Active Substance: CERTOLIZUMAB PEGOL
     Dosage: 400 MG, EV 2 WEEKS(QOW)
     Route: 058
     Dates: start: 2014
  13. TYLENOL [Concomitant]
     Active Substance: ACETAMINOPHEN
     Dosage: 325 MILLIGRAM

REACTIONS (13)
  - Rash pustular [Recovered/Resolved]
  - Chronic lymphocytic leukaemia [Recovered/Resolved]
  - Fistula [Unknown]
  - Oesophageal candidiasis [Unknown]
  - Oedema peripheral [Unknown]
  - Gastritis [Unknown]
  - Sepsis [Unknown]
  - Asthenia [Unknown]
  - Weight decreased [Unknown]
  - Haemorrhage [Unknown]
  - Oral candidiasis [Unknown]
  - Aphthous ulcer [Unknown]
  - Fatigue [Unknown]
